FAERS Safety Report 6131236-X (Version None)
Quarter: 2009Q1

REPORT INFORMATION
  Report Type: 
  Country: None (occurrence: None)
  Receive Date: 20090325
  Receipt Date: 20080327
  Transmission Date: 20090719
  Serious: No
  Sender: FDA-Public Use
  Company Number: US-BRISTOL-MYERS SQUIBB COMPANY-14046510

PATIENT
  Age: 73 Year
  Sex: Male

DRUGS (9)
  1. ERBITUX [Suspect]
     Indication: COLON CANCER
     Dosage: 575MG ADJUST AND HELD SOMETIMES
     Route: 042
     Dates: start: 20051201
  2. COREG [Concomitant]
  3. COUMADIN [Concomitant]
  4. ISOSORBIDE MONONITRATE [Concomitant]
  5. LASIX [Concomitant]
  6. LISINOPRIL [Concomitant]
  7. NITROGLYCERIN [Concomitant]
  8. SPIRONOLACTONE [Concomitant]
  9. ZOCOR [Concomitant]

REACTIONS (1)
  - OCULAR TOXICITY [None]
